FAERS Safety Report 15375971 (Version 1)
Quarter: 2018Q3

REPORT INFORMATION
  Report Type: Spontaneous
  Country: US (occurrence: US)
  Receive Date: 20180912
  Receipt Date: 20180912
  Transmission Date: 20181010
  Serious: No
  Sender: FDA-Public Use
  Company Number: US-PFIZER INC-2018278787

PATIENT
  Age: 84 Year
  Sex: Female
  Weight: 63 kg

DRUGS (8)
  1. LOSARTAN. [Concomitant]
     Active Substance: LOSARTAN
     Indication: HYPERTENSION
     Dosage: 25 MG, 1X/DAY
     Route: 048
  2. XALKORI [Suspect]
     Active Substance: CRIZOTINIB
     Indication: ADENOCARCINOMA
     Dosage: 200 MG, 2X/DAY
     Route: 048
     Dates: start: 20180604
  3. XALKORI [Suspect]
     Active Substance: CRIZOTINIB
     Indication: BRONCHIAL CARCINOMA
     Dosage: 200 MG, UNK
  4. TRIAMTERENE + HCTZ [Concomitant]
     Indication: HYPERTENSION
     Dosage: 1 DF, 2X/DAY [HYDROCHLOROTHIAZIDE: 37.5MG]/[TRIAMTERENE: 5.25MG]
     Route: 048
  5. GAS?X [Concomitant]
     Active Substance: DIMETHICONE
     Dosage: UNK
  6. OMEPRAZOLE. [Concomitant]
     Active Substance: OMEPRAZOLE
     Indication: ULCER
     Dosage: 40 MG, 1X/DAY
     Route: 048
  7. ONDANSETRON [Concomitant]
     Active Substance: ONDANSETRON
     Indication: NAUSEA
     Dosage: 8 MG, AS NEEDED (TABLET DISSOLVES IN MOUTH EVERY 8 HOURS AS NEEDED)
     Route: 048
  8. AMITRIPTYLINE [Concomitant]
     Active Substance: AMITRIPTYLINE
     Indication: CLAUSTROPHOBIA
     Dosage: 1 DF, 1X/DAY (ON EMPTY STOMACH AT NIGHT)
     Dates: start: 201802

REACTIONS (1)
  - Glomerular filtration rate decreased [Unknown]
